FAERS Safety Report 5606070-7 (Version None)
Quarter: 2008Q1

REPORT INFORMATION
  Report Type: 
  Country: None (occurrence: None)
  Receive Date: 20080123
  Receipt Date: 20080123
  Transmission Date: 20080703
  Serious: Yes (Life-Threatening, Hospitalization)
  Sender: FDA-Public Use
  Company Number: None

PATIENT
  Age: 51 Year
  Sex: Female
  Weight: 90.7194 kg

DRUGS (1)
  1. AMBIEN [Suspect]
     Indication: INSOMNIA
     Dates: start: 20070101, end: 20071210

REACTIONS (3)
  - ABNORMAL SLEEP-RELATED EVENT [None]
  - INCORRECT DOSE ADMINISTERED [None]
  - MIGRAINE [None]
